FAERS Safety Report 10685196 (Version 3)
Quarter: 2015Q1

REPORT INFORMATION
  Report Type: Spontaneous
  Country: US (occurrence: None)
  Receive Date: 20141229
  Receipt Date: 20150327
  Transmission Date: 20150720
  Serious: No
  Sender: FDA-Public Use
  Company Number: 3257951

PATIENT

DRUGS (1)
  1. BLINK GEL TEARS [Suspect]
     Active Substance: POLYETHYLENE GLYCOL 400
     Indication: DRY EYE
     Dosage: PRN- EYE

REACTIONS (1)
  - Physical product label issue [None]
